FAERS Safety Report 4300405-3 (Version None)
Quarter: 2004Q1

REPORT INFORMATION
  Report Type: 
  Country: None (occurrence: None)
  Receive Date: 20040218
  Receipt Date: 20040218
  Transmission Date: 20041129
  Serious: Yes (Hospitalization)
  Sender: FDA-Public Use
  Company Number: None

PATIENT
  Age: 79 Year
  Sex: Female
  Weight: 64.5 kg

DRUGS (13)
  1. DIGOXIN [Suspect]
     Indication: ATRIAL FIBRILLATION
     Dosage: 0.125 MG QD
  2. ALLOPURINOL [Concomitant]
  3. FOLIC ACID [Concomitant]
  4. RABEPRAZOLE SODIUM [Concomitant]
  5. VENLOFAXINE [Concomitant]
  6. GLIPIZIDE [Concomitant]
  7. AVANDIA [Concomitant]
  8. FUROSEMIDE [Concomitant]
  9. IRBESARTAN [Concomitant]
  10. PREVACID [Concomitant]
  11. TRAZODONE HCL [Concomitant]
  12. CARBIDOPAL/LEVO [Concomitant]
  13. METOCLOPRAMIDE [Concomitant]

REACTIONS (4)
  - CONFUSIONAL STATE [None]
  - NAUSEA [None]
  - VISION BLURRED [None]
  - VOMITING [None]
